FAERS Safety Report 4317614-X (Version None)
Quarter: 2004Q1

REPORT INFORMATION
  Report Type: 
  Country: None (occurrence: None)
  Receive Date: 20040315
  Receipt Date: 20040305
  Transmission Date: 20041129
  Serious: Yes (Hospitalization)
  Sender: FDA-Public Use
  Company Number: 200411745US

PATIENT
  Sex: 0

DRUGS (1)
  1. AMARYL [Suspect]
     Dosage: DOSE: UNK

REACTIONS (2)
  - HOSPITALISATION [None]
  - LIVER FUNCTION TEST ABNORMAL [None]
